FAERS Safety Report 7318640-9 (Version None)
Quarter: 2011Q1

REPORT INFORMATION
  Report Type: 
  Country: None (occurrence: None)
  Receive Date: 20110228
  Receipt Date: 20110217
  Transmission Date: 20110831
  Serious: Yes (Death, Hospitalization)
  Sender: FDA-Public Use
  Company Number: IT-SANOFI-AVENTIS-2011SA010209

PATIENT
  Age: 65 Year
  Sex: Female

DRUGS (6)
  1. FLUOROURACIL [Suspect]
     Route: 042
     Dates: start: 20101011, end: 20101012
  2. ELOXATIN [Suspect]
     Route: 042
     Dates: start: 20100830, end: 20100830
  3. ELOXATIN [Suspect]
     Route: 042
     Dates: start: 20101011, end: 20101011
  4. FLUOROURACIL [Suspect]
     Route: 042
     Dates: start: 20100830, end: 20100831
  5. ELOXATIN [Suspect]
     Route: 042
     Dates: start: 20101011, end: 20101011
  6. LAEVOLAC ^ROCHE^ [Concomitant]
     Route: 065

REACTIONS (4)
  - SEPSIS [None]
  - THROMBOCYTOPENIA [None]
  - LEUKOPENIA [None]
  - AGRANULOCYTOSIS [None]
